APPROVED DRUG PRODUCT: CARBOPLATIN
Active Ingredient: CARBOPLATIN
Strength: 600MG/60ML (10MG/ML)
Dosage Form/Route: INJECTABLE;INTRAVENOUS
Application: A077059 | Product #001 | TE Code: AP
Applicant: HOSPIRA INC
Approved: Nov 23, 2004 | RLD: No | RS: Yes | Type: RX